FAERS Safety Report 7003750-6 (Version None)
Quarter: 2010Q3

REPORT INFORMATION
  Report Type: 
  Country: None (occurrence: None)
  Receive Date: 20100920
  Receipt Date: 20100104
  Transmission Date: 20110219
  Serious: No
  Sender: FDA-Public Use
  Company Number: US-WYE-H12311709

PATIENT
  Age: 55 Year
  Sex: Male

DRUGS (6)
  1. PRISTIQ [Suspect]
     Indication: DEPRESSION
     Route: 048
     Dates: start: 20080101
  2. ATORVASTATIN [Concomitant]
  3. TOPROL-XL [Concomitant]
  4. FUROSEMIDE [Concomitant]
  5. RIFAXIMIN [Concomitant]
  6. PLAVIX [Concomitant]

REACTIONS (2)
  - CONDITION AGGRAVATED [None]
  - THROMBOCYTOPENIA [None]
